FAERS Safety Report 23623485 (Version 2)
Quarter: 2024Q1

REPORT INFORMATION
  Report Type: Spontaneous
  Country: IT (occurrence: IT)
  Receive Date: 20240312
  Receipt Date: 20240315
  Transmission Date: 20240410
  Serious: Yes (Death)
  Sender: FDA-Public Use
  Company Number: None

PATIENT
  Age: 14 Year
  Sex: Female
  Weight: 50 kg

DRUGS (12)
  1. TRAMETINIB [Suspect]
     Active Substance: TRAMETINIB
     Indication: Brain neoplasm
     Dosage: 0.5 MG/DIE
     Route: 048
     Dates: start: 20231106, end: 20240228
  2. VITAMINA D [Concomitant]
     Indication: Vitamin D deficiency
     Dosage: 4 GTT PER DAY, QD
     Route: 048
  3. VITAMINA D [Concomitant]
     Dosage: 4 GTT AL GIORNO
     Route: 048
  4. KEPPRA [Concomitant]
     Active Substance: LEVETIRACETAM
     Indication: Epilepsy
     Dosage: 1500 MG (750 MG ORE 08:00 E ORE 20:00)
     Route: 048
  5. RIVOTRIL [Concomitant]
     Active Substance: CLONAZEPAM
     Indication: Epilepsy
     Dosage: 7 DRP (3 GTT ORE 8:00 E 4 GTT ORE 22:00)
     Route: 048
  6. TIROSINT [Concomitant]
     Active Substance: LEVOTHYROXINE SODIUM
     Indication: Hypothyroidism
     Dosage: 25 DRP (25 GTT ORE 7:00)
     Route: 048
  7. CALCIO CARBONATO VIT D3 [Concomitant]
     Indication: Osteoporosis
     Dosage: UNK (COLECALCIUM HUMANA 15 ML AT 09:00 AND 21:00)
     Route: 048
  8. FOLINA [Concomitant]
     Indication: Anaemia
     Dosage: 5 MG, 1 VOLTA AL GIORNO
     Route: 048
  9. FOLINA [Concomitant]
     Dosage: 5 MG 1 VOLTA AL GIORNO
     Route: 048
  10. HYDROCORTISONE [Concomitant]
     Active Substance: HYDROCORTISONE
     Indication: Adrenal insufficiency
     Dosage: UNK (7.5 MG 08:00; 5 MG 2.00 PM; 2.5 MG 8PM)
     Route: 048
  11. HYDROCORTISONE [Concomitant]
     Active Substance: HYDROCORTISONE
     Dosage: 7,5 MG ORE 08:00; 5 MG ORE 14:00; 2,5 MG ORE 20:00
     Route: 048
  12. SIROLIMUS [Concomitant]
     Active Substance: SIROLIMUS
     Indication: Astrocytoma
     Dosage: UNK
     Route: 065

REACTIONS (1)
  - Pneumonitis [Fatal]

NARRATIVE: CASE EVENT DATE: 20240229
